FAERS Safety Report 9485808 (Version 2)
Quarter: 2013Q3

REPORT INFORMATION
  Report Type: Report from Study
  Country: US (occurrence: US)
  Receive Date: 20130829
  Receipt Date: 20130829
  Transmission Date: 20140515
  Serious: Yes (Other)
  Sender: FDA-Public Use
  Company Number: PHEH2013US014811

PATIENT
  Age: 13 Year
  Sex: Male

DRUGS (1)
  1. ILARIS [Suspect]
     Dosage: 280 MG, QMO
     Route: 058
     Dates: start: 201304, end: 20130621

REACTIONS (4)
  - Conjunctivitis [Recovered/Resolved]
  - Ocular hyperaemia [Recovered/Resolved]
  - Conjunctival hyperaemia [Recovered/Resolved]
  - Eye pain [Recovered/Resolved]
